FAERS Safety Report 5504177-6 (Version None)
Quarter: 2007Q4

REPORT INFORMATION
  Report Type: 
  Country: None (occurrence: None)
  Receive Date: 20071101
  Receipt Date: 20071024
  Transmission Date: 20080405
  Serious: Yes (Disabling)
  Sender: FDA-Public Use
  Company Number: B0472905A

PATIENT
  Age: 18 Day
  Sex: Male
  Weight: 1.4 kg

DRUGS (6)
  1. FORTUM [Suspect]
     Indication: SEPSIS
     Route: 042
     Dates: end: 20010830
  2. NETILMICIN SULFATE [Concomitant]
     Indication: SEPSIS
     Route: 042
     Dates: end: 20010831
  3. CEFOTAXIME [Concomitant]
     Indication: SEPSIS
     Route: 042
     Dates: start: 20010828, end: 20010831
  4. PENICILLIN G [Concomitant]
     Indication: SEPSIS
     Route: 065
     Dates: end: 20010825
  5. METRONIDAZOLE [Concomitant]
     Indication: SEPSIS
     Route: 065
     Dates: end: 20010825
  6. FLUCLOXACILLIN [Concomitant]
     Indication: DRUG USE FOR UNKNOWN INDICATION
     Route: 065

REACTIONS (3)
  - DEAFNESS [None]
  - OFF LABEL USE [None]
  - WRONG DRUG ADMINISTERED [None]
